FAERS Safety Report 15807462 (Version 1)
Quarter: 2019Q1

REPORT INFORMATION
  Report Type: Spontaneous
  Country: US (occurrence: US)
  Receive Date: 20190110
  Receipt Date: 20190110
  Transmission Date: 20190417
  Serious: Yes (Death, Other)
  Sender: FDA-Public Use
  Company Number: US-PFIZER INC-2019007033

PATIENT
  Age: 45 Year
  Sex: Male

DRUGS (4)
  1. NAPROXEN. [Suspect]
     Active Substance: NAPROXEN
     Dosage: UNK (INGST)
     Route: 048
  2. ACETYLSALICYLIC ACID/CAFFEINE/PARACETAMOL [Suspect]
     Active Substance: ACETAMINOPHEN\ASPIRIN\CAFFEINE
     Dosage: UNK (INGST)
     Route: 048
  3. DIPHENHYDRAMINE HCL [Suspect]
     Active Substance: DIPHENHYDRAMINE HYDROCHLORIDE
     Dosage: UNK (INGST)
     Route: 048
  4. ZOLPIDEM [Suspect]
     Active Substance: ZOLPIDEM\ZOLPIDEM TARTRATE
     Dosage: UNK (INGST)
     Route: 048

REACTIONS (3)
  - Cardiac arrest [Fatal]
  - Completed suicide [Fatal]
  - Respiratory arrest [Fatal]

NARRATIVE: CASE EVENT DATE: 2017
